FAERS Safety Report 20061686 (Version 2)
Quarter: 2022Q3

REPORT INFORMATION
  Report Type: Spontaneous
  Country: US (occurrence: US)
  Receive Date: 20211112
  Receipt Date: 20220726
  Transmission Date: 20221027
  Serious: No
  Sender: FDA-Public Use
  Company Number: US-BAUSCH-BL-2021-036713

PATIENT
  Sex: Female

DRUGS (1)
  1. ALAWAY PRESERVATIVE FREE [Suspect]
     Active Substance: KETOTIFEN FUMARATE
     Indication: Product used for unknown indication
     Route: 047
     Dates: start: 202110

REACTIONS (3)
  - Eyelid injury [Recovered/Resolved]
  - Product package associated injury [Recovered/Resolved]
  - Product container issue [Unknown]

NARRATIVE: CASE EVENT DATE: 20211001
